FAERS Safety Report 8182114-6 (Version None)
Quarter: 2012Q1

REPORT INFORMATION
  Report Type: 
  Country: None (occurrence: None)
  Receive Date: 20120302
  Receipt Date: 20120224
  Transmission Date: 20120608
  Serious: Yes (Other)
  Sender: FDA-Public Use
  Company Number: PHHY2012MX013856

PATIENT
  Sex: Female

DRUGS (2)
  1. ZOLEDRONOC ACID [Suspect]
     Indication: OSTEOPOROSIS
     Dosage: 5 MG/ 100 ML ONCE A YEAR
     Route: 042
     Dates: start: 20110415, end: 20110415
  2. KEPPRA [Concomitant]
     Dosage: 3 DF, UNK
     Dates: end: 20000101

REACTIONS (12)
  - HORMONE LEVEL ABNORMAL [None]
  - ARTHRALGIA [None]
  - BONE PAIN [None]
  - EYE PAIN [None]
  - PYREXIA [None]
  - EYE DISORDER [None]
  - SKIN FRAGILITY [None]
  - CHILLS [None]
  - ASTHENIA [None]
  - INSOMNIA [None]
  - BLINDNESS [None]
  - ALOPECIA [None]
